FAERS Safety Report 8860259 (Version 2)
Quarter: 2013Q1

REPORT INFORMATION
  Report Type: Spontaneous
  Country: BR (occurrence: BR)
  Receive Date: 20121025
  Receipt Date: 20130121
  Transmission Date: 20140127
  Serious: Yes (Hospitalization, Other)
  Sender: FDA-Public Use
  Company Number: PHHY2012BR095263

PATIENT
  Sex: Male

DRUGS (4)
  1. DIOVAN [Suspect]
     Indication: HYPERTENSION
     Dosage: 1 DF, DAILY
     Route: 048
     Dates: end: 201203
  2. OXYBUTYNIN CHLORIDE [Concomitant]
     Indication: URINARY TRACT DISORDER
     Dosage: 0.5 DF, DAILY
     Route: 048
  3. MAREVAN [Concomitant]
     Indication: ANTICOAGULANT THERAPY
     Dosage: 0.5 DF, DAILY
  4. MAREVAN [Concomitant]
     Dosage: 1 DF, DAILY

REACTIONS (6)
  - Mitral valve disease [Recovered/Resolved]
  - Post procedural complication [Recovered/Resolved]
  - Respiratory disorder [Recovered/Resolved]
  - Diaphragmatic disorder [Recovered/Resolved]
  - Weight decreased [Recovered/Resolved]
  - Hypertension [Not Recovered/Not Resolved]
